FAERS Safety Report 20841407 (Version 2)
Quarter: 2022Q4

REPORT INFORMATION
  Report Type: Report from Study
  Country: BR (occurrence: BR)
  Receive Date: 20220517
  Receipt Date: 20221106
  Transmission Date: 20230113
  Serious: Yes (Hospitalization)
  Sender: FDA-Public Use
  Company Number: BR-JNJFOC-20220530732

PATIENT
  Age: 58 Year
  Sex: Female
  Weight: 56 kg

DRUGS (1)
  1. REMICADE [Suspect]
     Active Substance: INFLIXIMAB
     Indication: Crohn^s disease
     Dosage: 3 VIALS. TREATMENT START DATE: 01-APR-2010 (ALSO INFORMED AS 2009)

REACTIONS (1)
  - Dengue fever [Unknown]

NARRATIVE: CASE EVENT DATE: 20220401
